FAERS Safety Report 5106909-8 (Version None)
Quarter: 2006Q3

REPORT INFORMATION
  Report Type: 
  Country: None (occurrence: None)
  Receive Date: 20060913
  Receipt Date: 20060906
  Transmission Date: 20061208
  Serious: Yes (Other)
  Sender: FDA-Public Use
  Company Number: 2006108077

PATIENT
  Age: 4 Month
  Sex: Female
  Weight: 5.4432 kg

DRUGS (1)
  1. INFANT'S PEDIACARE DECONGESTANT AND COUGH DROPS [Suspect]
     Indication: RHINORRHOEA
     Dosage: LESS THAN 0.8 ML EVERY 4 HOURS, ORAL
     Route: 048
     Dates: start: 20060801, end: 20060801

REACTIONS (1)
  - SPEECH DISORDER [None]
